FAERS Safety Report 5049731-3 (Version None)
Quarter: 2006Q3

REPORT INFORMATION
  Report Type: 
  Country: None (occurrence: None)
  Receive Date: 20060707
  Receipt Date: 20060705
  Transmission Date: 20061208
  Serious: Yes (Hospitalization)
  Sender: FDA-Public Use
  Company Number: 5891

PATIENT
  Age: 49 Year
  Sex: Male
  Weight: 117.9352 kg

DRUGS (3)
  1. 5% MINOXIDIL TOPICAL SOLUTION [Suspect]
     Indication: ALOPECIA
     Dosage: 1ML/BID/TOPICAL
     Route: 061
     Dates: start: 19960609, end: 20060609
  2. LOTREL [Concomitant]
  3. ATENOLOL [Concomitant]

REACTIONS (2)
  - CARDIAC DISORDER [None]
  - HEART RATE INCREASED [None]
